FAERS Safety Report 9380606 (Version 1)
Quarter: 2013Q3

REPORT INFORMATION
  Report Type: Spontaneous
  Country: US (occurrence: US)
  Receive Date: 20130702
  Receipt Date: 20130702
  Transmission Date: 20140515
  Serious: No
  Sender: FDA-Public Use
  Company Number: US-PFIZER INC-2013193200

PATIENT
  Age: 80 Year
  Sex: Male

DRUGS (11)
  1. LIPITOR [Suspect]
     Dosage: 80 MG, 1X/DAY
  2. DOXEPIN HCL [Suspect]
     Dosage: UNK
  3. EFFEXOR [Suspect]
     Dosage: 75 MG, 2X/DAY
  4. ACCUPRIL [Suspect]
     Dosage: UNK
  5. ANCEF [Suspect]
     Dosage: UNK
  6. METOPRIL [Suspect]
     Dosage: UNK
  7. NEXIUM [Suspect]
     Dosage: UNK
  8. B12 [Suspect]
     Dosage: UNK
  9. IRON [Suspect]
     Dosage: UNK
  10. LASIX [Suspect]
     Dosage: UNK
  11. POTASSIUM [Suspect]
     Dosage: UNK

REACTIONS (1)
  - Drug hypersensitivity [Unknown]
